FAERS Safety Report 7570167-5 (Version None)
Quarter: 2011Q2

REPORT INFORMATION
  Report Type: 
  Country: None (occurrence: None)
  Receive Date: 20110624
  Receipt Date: 20110613
  Transmission Date: 20111010
  Serious: Yes (Other)
  Sender: FDA-Public Use
  Company Number: GB-BRISTOL-MYERS SQUIBB COMPANY-15849888

PATIENT

DRUGS (2)
  1. TREOSULFAN [Suspect]
     Indication: COMBINED IMMUNODEFICIENCY
     Dosage: 1 DF=36G/M2 IN 3 DIVIDED DOSES ON 3 CONSECUTIVE DAYS
  2. CYCLOPHOSPHAMIDE [Suspect]
     Indication: COMBINED IMMUNODEFICIENCY

REACTIONS (3)
  - RASH [None]
  - GRAFT VERSUS HOST DISEASE [None]
  - ENGRAFTMENT SYNDROME [None]
